FAERS Safety Report 10788285 (Version 1)
Quarter: 2015Q1

REPORT INFORMATION
  Report Type: Spontaneous
  Country: NL (occurrence: None)
  Receive Date: 20150210
  Receipt Date: 20150210
  Transmission Date: 20150721
  Serious: Yes (Hospitalization, Other)
  Sender: FDA-Public Use
  Company Number: NL-2014VAL000699

PATIENT
  Age: 22 Year
  Sex: Male

DRUGS (7)
  1. METOPROLOL TARTRATE (METOPROLOL TARTRATE) UNKNOWN [Suspect]
     Active Substance: METOPROLOL TARTRATE
     Indication: PRODUCT USED FOR UNKNOWN INDICATION
  2. OMEPRAZOLE. [Concomitant]
     Active Substance: OMEPRAZOLE
  3. FLURAZEPAM [Concomitant]
     Active Substance: FLURAZEPAM\FLURAZEPAM HYDROCHLORIDE
  4. TEMAZEPAM. [Concomitant]
     Active Substance: TEMAZEPAM
  5. IMIPRAMINE (IMIPRAMINE) (IMIPRAMINE) [Suspect]
     Active Substance: IMIPRAMINE
     Indication: PRODUCT USED FOR UNKNOWN INDICATION
  6. ANT (ACETYLSALICYLIC ACID) [Concomitant]
  7. LORAZEPAM. [Concomitant]
     Active Substance: LORAZEPAM

REACTIONS (5)
  - Hypotension [None]
  - Overdose [None]
  - Electrocardiogram abnormal [None]
  - Lactic acidosis [None]
  - Toxicity to various agents [None]
